FAERS Safety Report 4397088-3 (Version None)
Quarter: 2004Q3

REPORT INFORMATION
  Report Type: 
  Country: None (occurrence: None)
  Receive Date: 20040708
  Receipt Date: 20040629
  Transmission Date: 20050211
  Serious: Yes (Death, Hospitalization)
  Sender: FDA-Public Use
  Company Number: 2002AP04175

PATIENT
  Age: 85 Year
  Sex: Male

DRUGS (1)
  1. IRESSA [Suspect]
     Indication: LUNG ADENOCARCINOMA
     Dosage: 250 MG DAILY PO
     Route: 048
     Dates: start: 20021021, end: 20021125

REACTIONS (9)
  - ANOREXIA [None]
  - DIFFUSE ALVEOLAR DAMAGE [None]
  - DISSEMINATED INTRAVASCULAR COAGULATION [None]
  - HEPATIC FUNCTION ABNORMAL [None]
  - LUNG DISORDER [None]
  - MALAISE [None]
  - PERFORMANCE STATUS DECREASED [None]
  - RASH [None]
  - THERAPEUTIC PRODUCT INEFFECTIVE [None]
